FAERS Safety Report 14219167 (Version 2)
Quarter: 2018Q1

REPORT INFORMATION
  Report Type: Spontaneous
  Country: US (occurrence: US)
  Receive Date: 20171123
  Receipt Date: 20180108
  Transmission Date: 20180508
  Serious: No
  Sender: FDA-Public Use
  Company Number: US-JNJFOC-20171111028

PATIENT
  Age: 77 Year
  Sex: Female
  Weight: 62.6 kg

DRUGS (4)
  1. WELLBUTRIN [Suspect]
     Active Substance: BUPROPION HYDROCHLORIDE
     Indication: PRODUCT USED FOR UNKNOWN INDICATION
     Route: 065
     Dates: start: 20170914
  2. STELARA [Suspect]
     Active Substance: USTEKINUMAB
     Indication: PSORIASIS
     Route: 058
     Dates: start: 20171030
  3. IBUPROFEN. [Concomitant]
     Active Substance: IBUPROFEN
     Indication: PAIN
     Route: 065
  4. STELARA [Suspect]
     Active Substance: USTEKINUMAB
     Indication: PSORIASIS
     Route: 058
     Dates: start: 2012

REACTIONS (11)
  - Drug ineffective [Not Recovered/Not Resolved]
  - Pain in extremity [Not Recovered/Not Resolved]
  - Psoriasis [Not Recovered/Not Resolved]
  - Nervousness [Unknown]
  - Inappropriate schedule of drug administration [Unknown]
  - Painful respiration [Unknown]
  - Arthralgia [Recovered/Resolved]
  - Pleurisy [Not Recovered/Not Resolved]
  - Off label use [Unknown]
  - Stress [Unknown]
  - Night sweats [Unknown]

NARRATIVE: CASE EVENT DATE: 2012
